FAERS Safety Report 17954429 (Version 1)
Quarter: 2020Q2

REPORT INFORMATION
  Report Type: Spontaneous
  Country: US (occurrence: US)
  Receive Date: 20200629
  Receipt Date: 20200629
  Transmission Date: 20200714
  Serious: No
  Sender: FDA-Public Use
  Company Number: US-JNJFOC-20200630663

PATIENT
  Sex: Female

DRUGS (2)
  1. IBUPROFEN. [Suspect]
     Active Substance: IBUPROFEN
     Indication: NAUSEA
  2. IBUPROFEN. [Suspect]
     Active Substance: IBUPROFEN
     Indication: MIGRAINE
     Route: 065

REACTIONS (1)
  - Product use in unapproved indication [Unknown]
